FAERS Safety Report 5968219-6 (Version None)
Quarter: 2008Q4

REPORT INFORMATION
  Report Type: 
  Country: None (occurrence: None)
  Receive Date: 20081126
  Receipt Date: 20081117
  Transmission Date: 20090506
  Serious: Yes (Life-Threatening, Hospitalization)
  Sender: FDA-Public Use
  Company Number: B0546637A

PATIENT
  Age: 51 Year
  Sex: Female

DRUGS (3)
  1. COMBIVIR [Suspect]
     Indication: HIV INFECTION
     Dosage: 1TAB TWICE PER DAY
     Route: 048
     Dates: start: 20020101, end: 20081007
  2. VIRAMUNE [Suspect]
     Indication: HIV INFECTION
     Route: 048
     Dates: start: 20080910, end: 20081007
  3. SUSTIVA [Suspect]
     Indication: HIV INFECTION
     Route: 065
     Dates: start: 20020101

REACTIONS (6)
  - DERMATITIS BULLOUS [None]
  - DYSPHAGIA [None]
  - MENTAL DISORDER [None]
  - MUCOUS MEMBRANE DISORDER [None]
  - PYREXIA [None]
  - TOXIC EPIDERMAL NECROLYSIS [None]
